FAERS Safety Report 6251556-8 (Version None)
Quarter: 2009Q2

REPORT INFORMATION
  Report Type: 
  Country: None (occurrence: None)
  Receive Date: 20090630
  Receipt Date: 20090625
  Transmission Date: 20091009
  Serious: Yes (Other)
  Sender: FDA-Public Use
  Company Number: DE-WATSON-2008-06293

PATIENT
  Age: 50 Year
  Sex: Female

DRUGS (8)
  1. FERRLECIT [Suspect]
     Indication: IRON DEFICIENCY ANAEMIA
     Dosage: 80 MG, UNK
     Route: 042
     Dates: start: 20080620
  2. FERRLECIT [Suspect]
     Indication: NEPHROGENIC ANAEMIA
     Dosage: 40 MG, UNK
     Route: 042
     Dates: start: 20070125
  3. FUSID                              /00032601/ [Concomitant]
     Indication: DRUG USE FOR UNKNOWN INDICATION
     Dosage: 1000 MG, DAILY
     Route: 048
  4. ENAHEXAL                           /00574902/ [Concomitant]
     Indication: DRUG USE FOR UNKNOWN INDICATION
     Dosage: 40 MG, DAILY
     Route: 065
  5. EBRANTIL                           /00631801/ [Concomitant]
     Indication: DRUG USE FOR UNKNOWN INDICATION
     Dosage: 120 MG, DAILY
     Route: 065
  6. L-THYROX [Concomitant]
     Indication: DRUG USE FOR UNKNOWN INDICATION
     Dosage: 75 UG, DAILY
     Route: 048
  7. PHOSPHONORM                        /00835101/ [Concomitant]
     Indication: DRUG USE FOR UNKNOWN INDICATION
     Dosage: UNK
     Route: 065
  8. VITAFERRO                          /00023503/ [Concomitant]
     Indication: DRUG USE FOR UNKNOWN INDICATION
     Dosage: UNK
     Route: 065

REACTIONS (6)
  - ABDOMINAL PAIN [None]
  - EOSINOPHILIA [None]
  - LEUKOCYTOSIS [None]
  - NAUSEA [None]
  - PLEURAL EFFUSION [None]
  - PRESYNCOPE [None]
